FAERS Safety Report 21535586 (Version 3)
Quarter: 2022Q4

REPORT INFORMATION
  Report Type: Spontaneous
  Country: JP (occurrence: JP)
  Receive Date: 20221101
  Receipt Date: 20221109
  Transmission Date: 20230113
  Serious: Yes (Hospitalization, Other)
  Sender: FDA-Public Use
  Company Number: JP-PFIZER INC-PV202200087716

PATIENT
  Age: 54 Year
  Sex: Male

DRUGS (5)
  1. METHOTREXATE SODIUM [Suspect]
     Active Substance: METHOTREXATE SODIUM
     Indication: Central nervous system lymphoma
     Dosage: 3.5 MG/M2
     Route: 042
  2. METHOTREXATE SODIUM [Suspect]
     Active Substance: METHOTREXATE SODIUM
     Dosage: 1.5 MG/M2
     Route: 042
  3. PROCARBAZINE [Concomitant]
     Active Substance: PROCARBAZINE
     Indication: Central nervous system lymphoma
     Dosage: 100 MG/M2, DAILY, FOR 7 DAYS
  4. VINCRISTINE [Concomitant]
     Active Substance: VINCRISTINE
     Indication: Central nervous system lymphoma
     Dosage: 1.4 MG/M2
     Route: 042
  5. CYTARABINE [Concomitant]
     Active Substance: CYTARABINE
     Dosage: 2000 MG/M2, DAILY, FOR TWO DAYS

REACTIONS (4)
  - Acute kidney injury [Recovered/Resolved]
  - Urate nephropathy [Recovered/Resolved]
  - Hyperuricaemia [Recovered/Resolved]
  - Off label use [Unknown]
